FAERS Safety Report 23706851 (Version 2)
Quarter: 2024Q3

REPORT INFORMATION
  Report Type: Report from Study
  Country: US (occurrence: US)
  Receive Date: 20240404
  Receipt Date: 20240912
  Transmission Date: 20241017
  Serious: No
  Sender: DR REDDYS
  Company Number: US-E2BLSMVVAL-CLI/USA/24/0004949

PATIENT
  Age: 25 Year
  Sex: Female
  Weight: 49.2 kg

DRUGS (1)
  1. JAVYGTOR [Suspect]
     Active Substance: SAPROPTERIN DIHYDROCHLORIDE
     Indication: Phenylketonuria
     Dosage: 8 TABLETS DAILY
     Route: 048
     Dates: start: 20230209

REACTIONS (3)
  - Anaemia [Unknown]
  - Exposure during pregnancy [Unknown]
  - Product dose omission issue [Unknown]
